FAERS Safety Report 9706881 (Version 2)
Quarter: 2013Q4

REPORT INFORMATION
  Report Type: Report from Study
  Country: AU (occurrence: AU)
  Receive Date: 20131125
  Receipt Date: 20131125
  Transmission Date: 20140711
  Serious: Yes (Hospitalization)
  Sender: FDA-Public Use
  Company Number: AU-ROCHE-1220124

PATIENT
  Age: 63 Year
  Sex: Female
  Weight: 91 kg

DRUGS (9)
  1. OBINUTUZUMAB [Suspect]
     Indication: B-CELL LYMPHOMA
     Dosage: DOSE CONCENTRATION OF LAST GA101 TAKEN 4 MG/ML, 23 APR 2013 MOST RECENT DOSE PRIOR TO SAE, VOLUME OF
     Route: 042
     Dates: start: 20130326
  2. BENDAMUSTINE [Suspect]
     Indication: B-CELL LYMPHOMA
     Dosage: ON 24/APR/2013, MOST RECENT DOSE PRIOR TO SAE 175.5 MG
     Route: 042
     Dates: start: 20130326
  3. CRESTOR [Concomitant]
     Indication: HYPERCHOLESTEROLAEMIA
  4. KARVEA [Concomitant]
     Indication: HYPERTENSION
  5. STEMETIL [Concomitant]
     Indication: PROPHYLAXIS
  6. LORATADINE [Concomitant]
     Route: 065
     Dates: start: 20130325
  7. GRANISETRON HYDROCHLORIDE [Concomitant]
     Route: 065
     Dates: start: 20130325, end: 20130424
  8. METOCLOPRAMIDE [Concomitant]
     Route: 065
     Dates: start: 20130325, end: 20130522
  9. LORAZEPAM [Concomitant]
     Route: 065
     Dates: start: 20130326

REACTIONS (2)
  - Abdominal pain [Recovered/Resolved]
  - Abdominal pain [Recovered/Resolved]
